FAERS Safety Report 4472468-6 (Version None)
Quarter: 2004Q4

REPORT INFORMATION
  Report Type: 
  Country: None (occurrence: None)
  Receive Date: 20041007
  Receipt Date: 20040928
  Transmission Date: 20050328
  Serious: Yes (Hospitalization)
  Sender: FDA-Public Use
  Company Number: 2004236176US

PATIENT
  Age: 58 Year
  Sex: Male
  Weight: 88.4 kg

DRUGS (4)
  1. CELEBREX [Suspect]
     Indication: ARTHRITIS
     Dosage: 100 MG, QD, ORAL
     Route: 048
     Dates: start: 20000101
  2. ATIVAN [Concomitant]
  3. ZANTAC [Concomitant]
  4. MULTIVITAMIN [Concomitant]

REACTIONS (9)
  - CATHETER RELATED COMPLICATION [None]
  - COUGH [None]
  - DIABETES MELLITUS [None]
  - DIFFICULT TO WEAN FROM VENTILATOR [None]
  - FATIGUE [None]
  - GASTRIC PERFORATION [None]
  - PAIN [None]
  - PANIC REACTION [None]
  - PNEUMONIA [None]
